FAERS Safety Report 5105852-8 (Version None)
Quarter: 2006Q3

REPORT INFORMATION
  Report Type: 
  Country: None (occurrence: None)
  Receive Date: 20060915
  Receipt Date: 20060913
  Transmission Date: 20061208
  Serious: Yes (Other)
  Sender: FDA-Public Use
  Company Number: US-GLAXOSMITHKLINE-A0620104A

PATIENT
  Sex: Female

DRUGS (1)
  1. PAXIL [Suspect]
     Indication: DRUG USE FOR UNKNOWN INDICATION
     Dosage: 7MG ALTERNATE DAYS
     Route: 048

REACTIONS (9)
  - BONE PAIN [None]
  - DISTURBANCE IN ATTENTION [None]
  - DIZZINESS [None]
  - DRUG WITHDRAWAL SYNDROME [None]
  - HEADACHE [None]
  - HEPATIC STEATOSIS [None]
  - INSOMNIA [None]
  - NEOPLASM MALIGNANT [None]
  - PAIN IN EXTREMITY [None]
